FAERS Safety Report 6867295-6 (Version None)
Quarter: 2010Q3

REPORT INFORMATION
  Report Type: 
  Country: None (occurrence: None)
  Receive Date: 20100722
  Receipt Date: 20100713
  Transmission Date: 20110219
  Serious: Yes (Hospitalization, Other)
  Sender: FDA-Public Use
  Company Number: US-PFIZER INC-2010012553

PATIENT
  Sex: Male
  Weight: 102.4 kg

DRUGS (7)
  1. SUTENT [Suspect]
     Indication: METASTATIC RENAL CELL CARCINOMA
     Dosage: 50 MG, DAILY X28 DAYS Q 42 DAYS
     Route: 048
     Dates: start: 20090301
  2. SUTENT [Suspect]
     Indication: RENAL CANCER METASTATIC
  3. GLIPIZIDE [Concomitant]
     Indication: DIABETES MELLITUS
     Dosage: 5 MG, 2X/DAY
     Route: 048
  4. METOPROLOL TARTRATE [Concomitant]
     Indication: BLOOD PRESSURE
     Dosage: 50 MG, 2X/DAY
     Route: 048
  5. METOPROLOL TARTRATE [Concomitant]
     Indication: CARDIAC DISORDER
  6. COZAAR [Concomitant]
     Indication: BLOOD PRESSURE
     Dosage: 25 MG, 1X/DAY
     Route: 048
  7. COZAAR [Concomitant]
     Indication: HYPERTENSION

REACTIONS (13)
  - ABDOMINAL DISTENSION [None]
  - ANAEMIA [None]
  - BLOOD PRESSURE INCREASED [None]
  - EYELID PTOSIS [None]
  - GASTROINTESTINAL DISORDER [None]
  - HYPERTENSION [None]
  - INFECTION [None]
  - MUSCLE SPASMS [None]
  - NEUTROPENIC SEPSIS [None]
  - PALMAR-PLANTAR ERYTHRODYSAESTHESIA SYNDROME [None]
  - PERIPHERAL COLDNESS [None]
  - RIB FRACTURE [None]
  - WHITE BLOOD CELL COUNT DECREASED [None]
